FAERS Safety Report 18312369 (Version 1)
Quarter: 2020Q3

REPORT INFORMATION
  Report Type: Other
  Country: TR (occurrence: TR)
  Receive Date: 20200925
  Receipt Date: 20200925
  Transmission Date: 20201103
  Serious: Yes (Hospitalization, Other)
  Sender: FDA-Public Use
  Company Number: TR-APPCO PHARMA LLC-2091151

PATIENT
  Age: 47 Year
  Sex: Male

DRUGS (1)
  1. HYDROXYCHLOROQUINE SULFATE. [Suspect]
     Active Substance: HYDROXYCHLOROQUINE SULFATE
     Indication: COVID-19 PROPHYLAXIS
     Route: 065

REACTIONS (2)
  - Off label use [Unknown]
  - Ocular myasthenia [Recovered/Resolved]
